FAERS Safety Report 24189695 (Version 1)
Quarter: 2024Q3

REPORT INFORMATION
  Report Type: Report from Study
  Country: CO (occurrence: CO)
  Receive Date: 20240808
  Receipt Date: 20240808
  Transmission Date: 20241017
  Serious: Yes (Hospitalization)
  Sender: UCB
  Company Number: CO-UCBSA-2024039681

PATIENT
  Age: 64 Year
  Sex: Male

DRUGS (4)
  1. ROTIGOTINE [Suspect]
     Active Substance: ROTIGOTINE
     Indication: Parkinson^s disease
     Dosage: 8 MILLIGRAM, ONCE DAILY (QD)
     Route: 062
     Dates: start: 20201211, end: 20221107
  2. ROTIGOTINE [Suspect]
     Active Substance: ROTIGOTINE
     Dosage: 10 MILLIGRAM, ONCE DAILY (QD)
     Route: 062
     Dates: start: 20221108, end: 20240728
  3. ROTIGOTINE [Suspect]
     Active Substance: ROTIGOTINE
     Dosage: 14 MILLIGRAM, ONCE DAILY (QD)
     Route: 062
     Dates: start: 20240729
  4. INSULIN NOS [Concomitant]
     Active Substance: INSULIN NOS
     Indication: Product used for unknown indication

REACTIONS (2)
  - Varicose ulceration [Not Recovered/Not Resolved]
  - Off label use [Unknown]

NARRATIVE: CASE EVENT DATE: 20201211
